FAERS Safety Report 16476271 (Version 1)
Quarter: 2019Q2

REPORT INFORMATION
  Report Type: Spontaneous
  Country: PL (occurrence: PL)
  Receive Date: 20190626
  Receipt Date: 20190626
  Transmission Date: 20190711
  Serious: Yes (Life-Threatening)
  Sender: FDA-Public Use
  Company Number: PL-ELI_LILLY_AND_COMPANY-PL201906011419

PATIENT
  Age: 68 Year
  Sex: Male
  Weight: 94 kg

DRUGS (1)
  1. ERBITUX [Suspect]
     Active Substance: CETUXIMAB
     Indication: RECTAL CANCER
     Dosage: 1000 MG, UNK
     Route: 065
     Dates: start: 20190111

REACTIONS (6)
  - Abdominal pain [Recovered/Resolved]
  - Blood pressure decreased [Recovered/Resolved]
  - Erythema [Recovered/Resolved]
  - Dyspnoea [Recovered/Resolved]
  - Altered state of consciousness [Recovered/Resolved]
  - Malaise [Recovered/Resolved]

NARRATIVE: CASE EVENT DATE: 20190111
